FAERS Safety Report 8610668-1 (Version None)
Quarter: 2012Q3

REPORT INFORMATION
  Report Type: 
  Country: None (occurrence: None)
  Receive Date: 20120822
  Receipt Date: 20120816
  Transmission Date: 20120928
  Serious: No
  Sender: FDA-Public Use
  Company Number: US-BAYER-2012-085293

PATIENT
  Age: 16 Year
  Sex: Male
  Weight: 72.562 kg

DRUGS (2)
  1. MULTI-VITAMIN [Concomitant]
  2. ALEVE (CAPLET) [Suspect]
     Indication: MUSCULOSKELETAL STIFFNESS
     Dosage: 1 DF, QD
     Route: 048
     Dates: start: 20110101

REACTIONS (1)
  - EYE SWELLING [None]
